FAERS Safety Report 7245185 (Version 16)
Quarter: 2013Q3

REPORT INFORMATION
  Report Type: Spontaneous
  Country: US (occurrence: US)
  Receive Date: 20100113
  Receipt Date: 20130823
  Transmission Date: 20140515
  Serious: Yes (Death, Other)
  Sender: FDA-Public Use
  Company Number: PHEH2010US00462

PATIENT
  Age: 77 Year
  Sex: Male
  Weight: 108.84 kg

DRUGS (24)
  1. AREDIA [Suspect]
     Dates: start: 20040102, end: 200506
  2. ZOMETA [Suspect]
     Indication: METASTASES TO BONE
     Dosage: 4 MG, QMO
     Route: 042
     Dates: start: 20031006, end: 200312
  3. ZOMETA [Suspect]
     Dosage: 3 MG, MONTHLY
     Dates: start: 200507
  4. TYLENOL [Concomitant]
     Indication: PYREXIA
  5. TYLENOL [Concomitant]
     Indication: HEADACHE
  6. MAGNESIUM CITRATE [Concomitant]
  7. LEVOTHYROXINE [Concomitant]
     Dosage: 0.1 MG, QD
     Route: 048
  8. AVAPRO [Concomitant]
     Dosage: 150 MG, BID
     Route: 048
  9. BENADRYL [Concomitant]
     Indication: INSOMNIA
     Dosage: 25 MG, QH
     Route: 048
  10. DROPERIDOL [Concomitant]
  11. FENTANYL [Concomitant]
  12. PROPOFOL [Concomitant]
  13. SUNITINIB MALATE [Concomitant]
     Dosage: 25 MG, QD
  14. CLONIDINE [Concomitant]
     Dosage: 0.2 MG, QD
  15. LOSARTAN [Concomitant]
     Dosage: 100 MG, QD
  16. HYDROCHLOROTHIAZIDE [Concomitant]
     Dosage: 25 MG, QD
  17. CLINDAMYCIN [Concomitant]
     Dosage: 150 MG, QD
  18. MORPHINE SULFATE [Concomitant]
     Dosage: 30 MG, 2 EVERY 8 HOURS
  19. DOXYCYCLINE [Concomitant]
  20. METROGEL [Concomitant]
  21. FERROUS SULPHATE [Concomitant]
  22. SYNTHROID [Concomitant]
  23. MS CONTIN [Concomitant]
     Dosage: 30 MG, TID
  24. DILAUDID [Concomitant]
     Dosage: 4 MG, UNK

REACTIONS (58)
  - Death [Fatal]
  - Osteonecrosis of jaw [Unknown]
  - General physical health deterioration [Unknown]
  - Pain [Unknown]
  - Anxiety [Unknown]
  - Decreased interest [Unknown]
  - Physical disability [Unknown]
  - Constipation [Unknown]
  - Exposed bone in jaw [Unknown]
  - Osteomyelitis [Unknown]
  - Urinary retention [Unknown]
  - Papilloma viral infection [Unknown]
  - Urethral obstruction [Unknown]
  - Urethral stenosis [Unknown]
  - Pulmonary mass [Unknown]
  - Nephrolithiasis [Unknown]
  - Pleural effusion [Unknown]
  - Dyspnoea [Unknown]
  - Sinus bradycardia [Unknown]
  - Osteoporosis [Unknown]
  - Lymphadenopathy [Unknown]
  - Cholelithiasis [Unknown]
  - Haemoptysis [Unknown]
  - Hypokalaemia [Unknown]
  - Conjunctivitis [Unknown]
  - Dental caries [Unknown]
  - Tooth abscess [Unknown]
  - Gynaecomastia [Unknown]
  - Oedema peripheral [Unknown]
  - Breast tenderness [Unknown]
  - Stomatitis [Recovered/Resolved]
  - Asthenia [Unknown]
  - Gait disturbance [Unknown]
  - Cardiomegaly [Unknown]
  - Renal cyst [Unknown]
  - Atelectasis [Unknown]
  - Osteopenia [Unknown]
  - Hepatic lesion [Unknown]
  - Cyst [Unknown]
  - Soft tissue mass [Unknown]
  - Pain in jaw [Unknown]
  - Skin lesion [Unknown]
  - Angiopathy [Unknown]
  - Decubitus ulcer [Unknown]
  - Depression [Unknown]
  - Insomnia [Unknown]
  - Wound [Unknown]
  - Lymphoedema [Unknown]
  - Osteolysis [Unknown]
  - Fibula fracture [Unknown]
  - Osteonecrosis [Unknown]
  - Bone lesion [Unknown]
  - Metastases to bone [Unknown]
  - Iliac artery embolism [Unknown]
  - Arthralgia [Unknown]
  - Pain in extremity [Unknown]
  - Femur fracture [Unknown]
  - Cataract [Unknown]
